FAERS Safety Report 12889762 (Version 1)
Quarter: 2016Q4

REPORT INFORMATION
  Report Type: Report from Study
  Country: KR (occurrence: KR)
  Receive Date: 20161027
  Receipt Date: 20161027
  Transmission Date: 20170207
  Serious: Yes (Hospitalization)
  Sender: FDA-Public Use
  Company Number: KR-CELLTRION HEALTHCARE HUNGARY KFT-2015KR003686

PATIENT

DRUGS (27)
  1. RHEUMIDE [Concomitant]
     Indication: RHEUMATOID ARTHRITIS
     Dosage: 10 MG, DAILY
     Route: 048
     Dates: start: 20140929, end: 20150303
  2. CAVID [Concomitant]
     Indication: MINERAL SUPPLEMENTATION
  3. ENTELON [Concomitant]
     Indication: OEDEMA
     Dosage: 300 MG, DAILY
     Route: 048
     Dates: start: 20140929, end: 20150416
  4. ENTELON [Concomitant]
     Dosage: 300 MG, DAILY
     Route: 048
     Dates: start: 20150430
  5. PD [Concomitant]
     Dosage: 6 MG, DAILY
     Route: 048
     Dates: start: 20150806
  6. SALON [Concomitant]
     Dosage: 31.25 MG, DAILY
     Route: 042
     Dates: start: 20150415, end: 20150415
  7. NEURONTIN [Concomitant]
     Active Substance: GABAPENTIN
     Dosage: 1200 MG, DAILY
     Route: 048
     Dates: start: 20150823
  8. CAVID [Concomitant]
     Indication: VITAMIN SUPPLEMENTATION
     Dosage: 2 TABLETS, DAILY
     Route: 048
     Dates: start: 20140929, end: 20150317
  9. IMUTERA [Concomitant]
     Dosage: 50 MG, DAILY
     Route: 048
     Dates: start: 20150430
  10. LIVALO [Concomitant]
     Active Substance: PITAVASTATIN CALCIUM
     Dosage: 2 MG, DAILY
     Route: 048
     Dates: start: 20150430
  11. TRIAMCINOLONE [Concomitant]
     Active Substance: TRIAMCINOLONE
     Indication: RHEUMATOID ARTHRITIS
     Dosage: 40 MG, DAILY
     Route: 058
     Dates: start: 20150318, end: 20150318
  12. TRIAMCINOLONE [Concomitant]
     Active Substance: TRIAMCINOLONE
     Dosage: 40 MG, DAILY
     Route: 058
     Dates: start: 20150415, end: 20150415
  13. REMSIMA [Suspect]
     Active Substance: INFLIXIMAB
     Indication: RHEUMATOID ARTHRITIS
     Dosage: 150 MG, EVERY 8 WEEKS
     Route: 042
     Dates: start: 20150304, end: 20150304
  14. ZOLPIRAM [Concomitant]
     Dosage: 10 MG, PRN
     Route: 048
     Dates: start: 20150910
  15. PD [Concomitant]
     Indication: RHEUMATOID ARTHRITIS
     Dosage: 4 MG, DAILY
     Route: 048
     Dates: start: 20141127, end: 20150416
  16. SALON [Concomitant]
     Indication: RHEUMATOID ARTHRITIS
     Dosage: 62.5 MG, DAILY
     Route: 042
     Dates: start: 20150304, end: 20150304
  17. XPAIN ER SEMI [Concomitant]
     Indication: RHEUMATOID ARTHRITIS
     Dosage: 2 TABLETS, DAILY
     Route: 048
     Dates: start: 20140929, end: 20150416
  18. OPALMON [Concomitant]
     Active Substance: LIMAPROST
     Dosage: 10 ?G, DAILY
     Route: 048
     Dates: start: 20150430
  19. ZOLPIRAM [Concomitant]
     Indication: PROPHYLAXIS
     Dosage: 5 MG, PRN
     Route: 048
     Dates: start: 20141127, end: 20150303
  20. REMSIMA [Suspect]
     Active Substance: INFLIXIMAB
     Dosage: 150 MG, EVERY 8 WEEKS
     Route: 042
     Dates: start: 20150318, end: 20150318
  21. XPAIN ER SEMI [Concomitant]
     Dosage: 2 TABLETS, DAILY
     Route: 048
     Dates: start: 20150430
  22. OPALMON [Concomitant]
     Active Substance: LIMAPROST
     Indication: SPINAL COLUMN STENOSIS
     Dosage: 10 ?G, DAILY
     Route: 048
     Dates: start: 20141223, end: 20150416
  23. PANTOLOC                           /01263204/ [Concomitant]
     Active Substance: PANTOPRAZOLE SODIUM
     Indication: GASTRITIS PROPHYLAXIS
     Dosage: 20 MG, DAILY
     Route: 048
     Dates: start: 20141029, end: 20150317
  24. IMUTERA [Concomitant]
     Indication: AUTOIMMUNE HEPATITIS
     Dosage: 50 MG, DAILY
     Route: 048
     Dates: start: 20060410, end: 20150416
  25. REMSIMA [Suspect]
     Active Substance: INFLIXIMAB
     Dosage: 150 MG, EVERY 8 WEEKS
     Route: 042
     Dates: start: 20150415, end: 20150415
  26. LIVALO [Concomitant]
     Active Substance: PITAVASTATIN CALCIUM
     Indication: HYPERCHOLESTEROLAEMIA
     Dosage: 2 MG, DAILY
     Route: 048
     Dates: start: 20140929, end: 20150416
  27. NEURONTIN [Concomitant]
     Active Substance: GABAPENTIN
     Indication: POST HERPETIC NEURALGIA
     Dosage: 400 MG, DAILY
     Route: 048
     Dates: start: 20150318, end: 20150416

REACTIONS (4)
  - Injury [Recovered/Resolved]
  - Cervical vertebral fracture [Recovered/Resolved]
  - Facial bones fracture [Recovered/Resolved]
  - Fall [Recovered/Resolved]

NARRATIVE: CASE EVENT DATE: 20150417
